FAERS Safety Report 4979138-6 (Version None)
Quarter: 2006Q2

REPORT INFORMATION
  Report Type: 
  Country: None (occurrence: None)
  Receive Date: 20060421
  Receipt Date: 20060412
  Transmission Date: 20061013
  Serious: Yes (Life-Threatening)
  Sender: FDA-Public Use
  Company Number: JP-JNJFOC-20060403134

PATIENT
  Age: 65 Year
  Sex: Female

DRUGS (2)
  1. RISPERDAL [Suspect]
     Indication: SCHIZOPHRENIA
     Route: 048
  2. SENNOSIDE [Concomitant]
     Route: 048

REACTIONS (3)
  - DIABETIC KETOACIDOSIS [None]
  - PYREXIA [None]
  - RENAL FAILURE [None]
